FAERS Safety Report 9071202 (Version 1)
Quarter: 2013Q1

REPORT INFORMATION
  Report Type: Spontaneous
  Country: US (occurrence: US)
  Receive Date: 20130206
  Receipt Date: 20130206
  Transmission Date: 20140127
  Serious: No
  Sender: FDA-Public Use
  Company Number: US-ALLERGAN-1209639US

PATIENT
  Age: 56 Year
  Sex: Female

DRUGS (5)
  1. RESTASIS? [Suspect]
     Indication: DRY EYE
     Dosage: 2 GTT, BID
     Route: 047
     Dates: start: 20120426
  2. SYSTANE GEL DROPS [Concomitant]
     Indication: DRY EYE
     Dosage: 2 GTT, QHS
     Route: 047
     Dates: start: 201108
  3. REFRESH PM                         /00880201/ [Concomitant]
     Indication: DRY EYE
     Dosage: UNK UNK, QHS
     Route: 047
     Dates: start: 201108
  4. PRILOSEC                           /00661201/ [Concomitant]
     Indication: GASTROOESOPHAGEAL REFLUX DISEASE
     Dosage: 20 MG, UNK
     Route: 048
  5. AMBIEN [Concomitant]
     Indication: INSOMNIA
     Dosage: UNK UNK, PRN
     Route: 048

REACTIONS (2)
  - Wrong technique in drug usage process [Unknown]
  - Sinus disorder [Not Recovered/Not Resolved]
